FAERS Safety Report 5389266-1 (Version None)
Quarter: 2007Q3

REPORT INFORMATION
  Report Type: 
  Country: None (occurrence: None)
  Receive Date: 20070717
  Receipt Date: 20070709
  Transmission Date: 20080115
  Serious: Yes (Disabling, Other)
  Sender: FDA-Public Use
  Company Number: B0479357A

PATIENT
  Age: 71 Year
  Sex: Male

DRUGS (5)
  1. AVANDAMET [Suspect]
     Dosage: 4MG TWICE PER DAY
     Route: 048
     Dates: start: 20060601, end: 20061001
  2. ATORVASTATIN [Concomitant]
     Indication: BLOOD CHOLESTEROL INCREASED
     Dosage: 40MG PER DAY
     Route: 048
  3. GLICLAZIDE [Concomitant]
     Dosage: 160MG TWICE PER DAY
     Route: 048
  4. RAMIPRIL [Concomitant]
     Indication: BLOOD PRESSURE INADEQUATELY CONTROLLED
     Route: 048
  5. WARFARIN SODIUM [Concomitant]
     Indication: ATRIAL FIBRILLATION
     Route: 048

REACTIONS (2)
  - DYSPNOEA [None]
  - GAIT DISTURBANCE [None]
